FAERS Safety Report 24441275 (Version 2)
Quarter: 2024Q4

REPORT INFORMATION
  Report Type: Spontaneous
  Country: US (occurrence: US)
  Receive Date: 20241016
  Receipt Date: 20241017
  Transmission Date: 20250114
  Serious: No
  Sender: ROCHE
  Company Number: US-ROCHE-3471009

PATIENT
  Age: 8 Year
  Sex: Male
  Weight: 28.12 kg

DRUGS (2)
  1. HEMLIBRA [Suspect]
     Active Substance: EMICIZUMAB-KXWH
     Indication: Factor VIII deficiency
     Dosage: STRENGTH: 105MG/0.7 ML
     Route: 058
     Dates: start: 202209
  2. HEMLIBRA [Suspect]
     Active Substance: EMICIZUMAB-KXWH
     Dosage: STRENGTH: 105MG/0.7 ML
     Route: 058
     Dates: start: 202209

REACTIONS (2)
  - Haemorrhage [Recovered/Resolved]
  - Joint injury [Unknown]
